FAERS Safety Report 5007100-6 (Version None)
Quarter: 2006Q2

REPORT INFORMATION
  Report Type: 
  Country: None (occurrence: None)
  Receive Date: 20060517
  Receipt Date: 20060504
  Transmission Date: 20061013
  Serious: Yes (Hospitalization, Other)
  Sender: FDA-Public Use
  Company Number: 2006061902

PATIENT
  Age: 53 Year
  Sex: Male

DRUGS (4)
  1. CELEBREX [Suspect]
     Indication: FIBROMYALGIA
     Dosage: 200 MG
     Dates: start: 19990101
  2. LOVASTATIN [Suspect]
     Indication: ILL-DEFINED DISORDER
     Dosage: 60 MG (60 MG, 1 IN 1 D)
  3. ZETIA [Suspect]
     Indication: ILL-DEFINED DISORDER
     Dosage: 10 MG (10 MG, 1 IN 1 D)
  4. CRESTOR [Suspect]
     Indication: ILL-DEFINED DISORDER
     Dosage: 2.5 MG (2.5 MG, 1 IN 1 D)

REACTIONS (12)
  - ACTIVATED PARTIAL THROMBOPLASTIN TIME PROLONGED [None]
  - BUNDLE BRANCH BLOCK RIGHT [None]
  - CEREBRAL ARTERY STENOSIS [None]
  - CORONARY ARTERY DISSECTION [None]
  - GLYCOSYLATED HAEMOGLOBIN INCREASED [None]
  - INSULIN RESISTANCE SYNDROME [None]
  - INTERNATIONAL NORMALISED RATIO DECREASED [None]
  - MYALGIA [None]
  - MYOCARDIAL INFARCTION [None]
  - VENTRICULAR DYSFUNCTION [None]
  - VENTRICULAR HYPOKINESIA [None]
  - WHITE BLOOD CELL COUNT INCREASED [None]
